FAERS Safety Report 9587397 (Version 3)
Quarter: 2013Q4

REPORT INFORMATION
  Report Type: Spontaneous
  Country: US (occurrence: US)
  Receive Date: 20131003
  Receipt Date: 20131018
  Transmission Date: 20140711
  Serious: Yes (Hospitalization)
  Sender: FDA-Public Use
  Company Number: US-DENDREON CORPORATION-2013PROUSA03173

PATIENT
  Age: 75 Year
  Sex: Male
  Weight: 137.41 kg

DRUGS (11)
  1. PROVENGE [Suspect]
     Indication: PROSTATE CANCER METASTATIC
     Dosage: 250 ML, SINGLE
     Route: 042
     Dates: start: 20130819, end: 20130819
  2. PROVENGE [Suspect]
     Dosage: 250 ML, SINGLE
     Route: 042
     Dates: start: 20130909, end: 20130909
  3. AMLODIPINE BESYLATE [Concomitant]
     Dosage: 5 MG, QD
     Route: 048
  4. ASPIRIN [Concomitant]
     Dosage: 81 MG, QD
     Route: 048
  5. LASIX [Concomitant]
     Dosage: 40 MG, UNK
     Route: 048
  6. LOSARTAN POTASSIUM AND HYDROCHLOROTHIAZIDE [Concomitant]
     Dosage: 50/12.5
     Route: 048
  7. OMEPRAZOLE [Concomitant]
     Dosage: 20 MG, QD
     Route: 048
  8. PREDNISONE [Concomitant]
     Dosage: 20 MG IN AM, 10 MG IN PM
     Route: 048
  9. SOTALOL HYDROCHLORIDE [Concomitant]
     Dosage: 80 MG, QD
     Route: 048
  10. SUCRALFATE [Concomitant]
     Dosage: 1 G, QID
     Route: 048
  11. VITAMIN D [Concomitant]
     Dosage: 400 IU, QD
     Route: 048

REACTIONS (2)
  - Bacteraemia [Not Recovered/Not Resolved]
  - Culture positive [Unknown]
